FAERS Safety Report 7622134-0 (Version None)
Quarter: 2011Q3

REPORT INFORMATION
  Report Type: 
  Country: None (occurrence: None)
  Receive Date: 20110720
  Receipt Date: 20101007
  Transmission Date: 20111222
  Serious: No
  Sender: FDA-Public Use
  Company Number: US-BAYER-201022839BCC

PATIENT
  Sex: Male
  Weight: 77.273 kg

DRUGS (3)
  1. ANTIHYPERTENSIVES [Concomitant]
     Dosage: 20 MG, UNK
  2. ALEVE [Suspect]
     Indication: ARTHRALGIA
     Dosage: DAILY DOSE 2 DF
     Route: 048
  3. ASPIRIN [Suspect]
     Indication: ISCHAEMIC HEART DISEASE PROPHYLAXIS
     Dosage: DAILY DOSE 2 DF
     Route: 048

REACTIONS (1)
  - CONTUSION [None]
